FAERS Safety Report 26128182 (Version 1)
Quarter: 2025Q4

REPORT INFORMATION
  Report Type: Report from Study
  Country: EU (occurrence: EU)
  Receive Date: 20251207
  Receipt Date: 20251207
  Transmission Date: 20260117
  Serious: No
  Sender: JOHNSON AND JOHNSON
  Company Number: EU-JNJFOC-20251203009

PATIENT

DRUGS (1)
  1. TALVEY [Suspect]
     Active Substance: TALQUETAMAB-TGVS
     Indication: Product used for unknown indication

REACTIONS (6)
  - Infection [Unknown]
  - Oral infection [Unknown]
  - Off label use [Unknown]
  - Skin reaction [Unknown]
  - Nail disorder [Unknown]
  - Medication error [Unknown]
